FAERS Safety Report 8621547-8 (Version None)
Quarter: 2012Q3

REPORT INFORMATION
  Report Type: 
  Country: None (occurrence: None)
  Receive Date: 20120824
  Receipt Date: 20120815
  Transmission Date: 20120928
  Serious: Yes (Hospitalization, Other)
  Sender: FDA-Public Use
  Company Number: CHPA2012US018251

PATIENT
  Age: 82 Year
  Sex: Female

DRUGS (5)
  1. LOSARTAN POTASSIUM AND HYDROCHLOROTHIAZIDE [Concomitant]
     Indication: HYPERTENSION
     Dosage: 1 DF, QD
  2. PREVACID 24 HR [Suspect]
     Indication: GASTROOESOPHAGEAL REFLUX DISEASE
     Dosage: 15 MG, PRN
     Route: 048
     Dates: start: 20100101
  3. AMLODIPINE [Concomitant]
     Indication: HYPERTENSION
     Dosage: 1 DF, QD
  4. PREVACID 24 HR [Suspect]
     Dosage: 15 MG, QD
     Route: 048
     Dates: start: 20120718
  5. CLONIDINE [Concomitant]
     Indication: HYPERTENSION
     Dosage: 3 DF, QD

REACTIONS (11)
  - DECREASED APPETITE [None]
  - DYSPHAGIA [None]
  - MALAISE [None]
  - INCORRECT DRUG ADMINISTRATION DURATION [None]
  - CHEST PAIN [None]
  - OFF LABEL USE [None]
  - TREATMENT NONCOMPLIANCE [None]
  - BALANCE DISORDER [None]
  - HERPES ZOSTER [None]
  - VISION BLURRED [None]
  - TRANSIENT ISCHAEMIC ATTACK [None]
